FAERS Safety Report 7148452-0 (Version None)
Quarter: 2010Q4

REPORT INFORMATION
  Report Type: 
  Country: None (occurrence: None)
  Receive Date: 20101209
  Receipt Date: 20101125
  Transmission Date: 20110411
  Serious: Yes (Hospitalization)
  Sender: FDA-Public Use
  Company Number: PHHY2010AU80251

PATIENT
  Sex: Female

DRUGS (1)
  1. CLOZARIL [Suspect]

REACTIONS (2)
  - PYREXIA [None]
  - RENAL IMPAIRMENT [None]
